FAERS Safety Report 24315432 (Version 1)
Quarter: 2024Q3

REPORT INFORMATION
  Report Type: Spontaneous
  Country: US (occurrence: US)
  Receive Date: 20240913
  Receipt Date: 20240913
  Transmission Date: 20241016
  Serious: No
  Sender: ALVOGEN
  Company Number: US-ALVOGEN-2024095267

PATIENT
  Sex: Male

DRUGS (1)
  1. LISDEXAMFETAMINE [Suspect]
     Active Substance: LISDEXAMFETAMINE
     Indication: Disturbance in attention
     Dosage: 10 MG, ONCE A DAY
     Dates: start: 2024

REACTIONS (8)
  - Asthenia [Unknown]
  - Abdominal distension [Unknown]
  - Depressed mood [Unknown]
  - Abdominal pain upper [Unknown]
  - Decreased appetite [Unknown]
  - Anxiety [Unknown]
  - Weight decreased [Unknown]
  - Diarrhoea [Unknown]

NARRATIVE: CASE EVENT DATE: 20240101
